FAERS Safety Report 8248013 (Version 3)
Quarter: 2013Q2

REPORT INFORMATION
  Report Type: Report from Study
  Country: AU (occurrence: AU)
  Receive Date: 20111116
  Receipt Date: 20130514
  Transmission Date: 20140414
  Serious: Yes (Death)
  Sender: FDA-Public Use
  Company Number: PHHY2010AU092660

PATIENT
  Sex: Male

DRUGS (6)
  1. ACLASTA [Suspect]
     Dosage: 5 MG,
     Route: 042
     Dates: start: 20091201
  2. BETALOC [Concomitant]
     Dosage: UNK
  3. PANADOL [Concomitant]
     Dosage: UNK
  4. ARICEPT [Concomitant]
     Dosage: UNK
  5. CRESTOR [Concomitant]
     Dosage: UNK
  6. ANTIARRHYTHMICS [Concomitant]
     Dosage: UNK

REACTIONS (2)
  - Dementia [Fatal]
  - Cachexia [Fatal]
